FAERS Safety Report 5500766-3 (Version None)
Quarter: 2007Q4

REPORT INFORMATION
  Report Type: 
  Country: None (occurrence: None)
  Receive Date: 20071029
  Receipt Date: 20071018
  Transmission Date: 20080405
  Serious: Yes (Other)
  Sender: FDA-Public Use
  Company Number: GR-ROCHE-526331

PATIENT
  Age: 63 Year
  Sex: Female

DRUGS (3)
  1. XELODA [Suspect]
     Indication: DRUG USE FOR UNKNOWN INDICATION
     Dosage: FORM FILM COATED TABLET
     Route: 048
     Dates: start: 20070701
  2. SEROPRAM [Concomitant]
  3. PRIMPERAN [Concomitant]

REACTIONS (2)
  - DIPLOPIA [None]
  - ILL-DEFINED DISORDER [None]
